FAERS Safety Report 23498417 (Version 1)
Quarter: 2024Q1

REPORT INFORMATION
  Report Type: Spontaneous
  Country: DE (occurrence: DE)
  Receive Date: 20240207
  Receipt Date: 20240207
  Transmission Date: 20240410
  Serious: Yes (Hospitalization, Other)
  Sender: FDA-Public Use
  Company Number: DE-BRISTOL-MYERS SQUIBB COMPANY-2024-017212

PATIENT
  Age: 57 Year
  Sex: Male
  Weight: 88 kg

DRUGS (15)
  1. OPDIVO [Suspect]
     Active Substance: NIVOLUMAB
     Indication: Non-small cell lung cancer
     Dosage: DAY 1, REPEAT ON DAY 22
     Route: 042
     Dates: start: 20231102
  2. OPDIVO [Suspect]
     Active Substance: NIVOLUMAB
     Dosage: CYCLE 2
     Route: 042
     Dates: start: 20231123, end: 20231219
  3. IPILIMUMAB [Suspect]
     Active Substance: IPILIMUMAB
     Indication: Non-small cell lung cancer
     Dosage: DAY 1, REPEAT EVERY 6 WEEKS
     Dates: start: 20231102
  4. PACLITAXEL [Concomitant]
     Active Substance: PACLITAXEL
     Indication: Non-small cell lung cancer
     Dosage: DAY 1, REPEAT ON DAY 22 (350MG)
     Dates: start: 20231102
  5. PACLITAXEL [Concomitant]
     Active Substance: PACLITAXEL
     Dosage: DAY 1, REPEAT ON DAY 22, CYCLE 2
     Dates: start: 20231123
  6. CARBOPLATIN [Concomitant]
     Active Substance: CARBOPLATIN
     Indication: Non-small cell lung cancer
     Dosage: DAY 1, REPEAT ON DAY 22
     Dates: start: 20231102
  7. CARBOPLATIN [Concomitant]
     Active Substance: CARBOPLATIN
     Dosage: DAY 1, REPEAT ON DAY 22, CYCLE 2
     Dates: start: 20231123
  8. METFORMIN [Concomitant]
     Active Substance: METFORMIN HYDROCHLORIDE
     Indication: Product used for unknown indication
     Dosage: MORNING EVENING
  9. JARDIANCE [Concomitant]
     Active Substance: EMPAGLIFLOZIN
     Indication: Product used for unknown indication
  10. ROSUVASTATIN [Concomitant]
     Active Substance: ROSUVASTATIN
     Indication: Product used for unknown indication
     Dosage: EVENING
  11. LANTUS [Concomitant]
     Active Substance: INSULIN GLARGINE
     Indication: Type 2 diabetes mellitus
     Dosage: AT NIGHT
  12. LEVOTHYROXINE [Concomitant]
     Active Substance: LEVOTHYROXINE\LEVOTHYROXINE SODIUM
     Indication: Product used for unknown indication
     Dosage: 100/125?G IN DAILY ALTERNATION ( 1 MORNING)
  13. PANTOPRAZOLE [Concomitant]
     Active Substance: PANTOPRAZOLE
     Indication: Product used for unknown indication
     Dosage: AS NEEDED
  14. CORTISONE [Concomitant]
     Active Substance: CORTISONE
     Indication: Prophylaxis
     Dosage: PREPARATION FOR THE ESOPHAGUS.
  15. DEXAMETHASONE [Concomitant]
     Active Substance: DEXAMETHASONE
     Dosage: MORNING AND NOON

REACTIONS (9)
  - Anaphylactic reaction [Recovered/Resolved]
  - Feeling hot [Recovered/Resolved]
  - Erythema [Recovered/Resolved]
  - Malaise [Recovered/Resolved]
  - Fatigue [Recovered/Resolved]
  - Pain in extremity [Recovered/Resolved]
  - Alopecia [Unknown]
  - Hypoxia [Unknown]
  - Metabolic alkalosis [Unknown]

NARRATIVE: CASE EVENT DATE: 20231101
